FAERS Safety Report 9501654 (Version 3)
Quarter: 2013Q3

REPORT INFORMATION
  Report Type: Report from Study
  Country: IT (occurrence: IT)
  Receive Date: 20130905
  Receipt Date: 20130927
  Transmission Date: 20140515
  Serious: Yes (Life-Threatening, Hospitalization)
  Sender: FDA-Public Use
  Company Number: IT-INCYTE CORPORATION-2013IN001756

PATIENT
  Age: 58 Year
  Sex: Male
  Weight: 82 kg

DRUGS (6)
  1. INC424 [Suspect]
     Indication: MYELOFIBROSIS
     Dosage: 20 MG, BID
     Route: 048
     Dates: start: 20130508, end: 20130711
  2. INC424 [Suspect]
     Dosage: 15 MG, BID
     Route: 048
     Dates: start: 20130712, end: 20130721
  3. VALPROIC ACID [Concomitant]
     Dosage: UNK
  4. PAROXETINA [Concomitant]
     Dosage: UNK
  5. ZYLORIC [Concomitant]
     Dosage: UNK
  6. CARDIOASPIRINA [Concomitant]
     Dosage: UNK
     Dates: end: 20130721

REACTIONS (2)
  - Pyrexia [Recovered/Resolved]
  - Respiratory failure [Recovering/Resolving]
